FAERS Safety Report 7659643-4 (Version None)
Quarter: 2011Q3

REPORT INFORMATION
  Report Type: 
  Country: None (occurrence: None)
  Receive Date: 20110805
  Receipt Date: 20110729
  Transmission Date: 20111222
  Serious: Yes (Death, Life-Threatening, Hospitalization, Other)
  Sender: FDA-Public Use
  Company Number: BR-BAYER-201013493LA

PATIENT
  Age: 62 Year
  Sex: Male
  Weight: 64 kg

DRUGS (4)
  1. PROPRANOLOL [Concomitant]
     Indication: HYPERTENSION
     Route: 048
     Dates: start: 20061001, end: 20100411
  2. BLINDED SORAFENIB (RAF KINASE INHIBITOR) [Suspect]
     Indication: HEPATIC NEOPLASM MALIGNANT
     Dosage: STUDY PERIOD: C1DAY1
     Route: 048
     Dates: start: 20100401, end: 20100411
  3. DOMPERIDONE [Concomitant]
     Indication: ABDOMINAL DISTENSION
     Route: 048
     Dates: start: 20081218, end: 20100411
  4. SORAFENIB [Suspect]
     Indication: HEPATIC NEOPLASM MALIGNANT
     Dosage: STUDY PERIOD: C1DAY1
     Route: 048
     Dates: start: 20100401, end: 20100411

REACTIONS (3)
  - HEPATIC FUNCTION ABNORMAL [None]
  - RENAL FAILURE [None]
  - DIARRHOEA [None]
